FAERS Safety Report 20355858 (Version 2)
Quarter: 2022Q1

REPORT INFORMATION
  Report Type: Spontaneous
  Country: JP (occurrence: None)
  Receive Date: 20220120
  Receipt Date: 20220224
  Transmission Date: 20220423
  Serious: Yes (Death, Hospitalization, Other)
  Sender: FDA-Public Use
  Company Number: 2022A030118

PATIENT
  Age: 67 Year
  Sex: Male

DRUGS (2)
  1. IMFINZI [Suspect]
     Active Substance: DURVALUMAB
     Indication: Non-small cell lung cancer
     Route: 041
     Dates: start: 20210601, end: 20210629
  2. LIPITOR [Concomitant]
     Active Substance: ATORVASTATIN CALCIUM
     Indication: Hyperlipidaemia
     Dosage: DOSE UNKNOWN
     Route: 065

REACTIONS (5)
  - Pneumothorax [Not Recovered/Not Resolved]
  - Infectious pleural effusion [Fatal]
  - Interstitial lung disease [Unknown]
  - Radiation pneumonitis [Unknown]
  - Silent thyroiditis [Unknown]

NARRATIVE: CASE EVENT DATE: 20210713
